FAERS Safety Report 23838518 (Version 2)
Quarter: 2024Q2

REPORT INFORMATION
  Report Type: Spontaneous
  Country: IE (occurrence: IE)
  Receive Date: 20240509
  Receipt Date: 20240520
  Transmission Date: 20240715
  Serious: Yes (Other)
  Sender: FDA-Public Use
  Company Number: IE-002147023-NVSC2024IE096393

PATIENT
  Sex: Male

DRUGS (7)
  1. CYCLOSPORINE [Suspect]
     Active Substance: CYCLOSPORINE
     Indication: Acute graft versus host disease in skin
     Dosage: 3 MG/KG
     Route: 065
  2. PREDNISOLONE [Suspect]
     Active Substance: PREDNISOLONE
     Indication: Acute graft versus host disease in skin
     Dosage: 1 MG/KG
     Route: 048
  3. PREDNISOLONE [Suspect]
     Active Substance: PREDNISOLONE
     Dosage: BELOW 0.2 MG/KG
     Route: 048
  4. RUXOLITINIB [Suspect]
     Active Substance: RUXOLITINIB
     Indication: Graft versus host disease
     Dosage: 2.5 MG, QD
     Route: 065
  5. BETAMETHASONE [Suspect]
     Active Substance: BETAMETHASONE\BETAMETHASONE DIPROPIONATE
     Indication: Acute graft versus host disease in skin
     Dosage: UNK
     Route: 061
  6. DUPILUMAB [Suspect]
     Active Substance: DUPILUMAB
     Indication: Chronic graft versus host disease in skin
     Dosage: 300 MG (FIRST DOSE) FORTNIGHTLY
     Route: 058
  7. DUPILUMAB [Suspect]
     Active Substance: DUPILUMAB
     Dosage: 200 MG (SECOND DOSE) FORTNIGHTLY
     Route: 058

REACTIONS (5)
  - Thrombotic microangiopathy [Unknown]
  - Pulmonary hypertension [Unknown]
  - Haemorrhage [Unknown]
  - Acute graft versus host disease in skin [Unknown]
  - Drug ineffective [Unknown]
